FAERS Safety Report 8288139-4 (Version None)
Quarter: 2012Q2

REPORT INFORMATION
  Report Type: 
  Country: None (occurrence: None)
  Receive Date: 20120416
  Receipt Date: 20120411
  Transmission Date: 20120825
  Serious: Yes (Death)
  Sender: FDA-Public Use
  Company Number: US-MEDIMMUNE-MEDI-0015151

PATIENT
  Sex: Male
  Weight: 3.03 kg

DRUGS (4)
  1. ZINC OXIDE [Concomitant]
     Dates: start: 20120222, end: 20120301
  2. SYNAGIS [Suspect]
     Dates: start: 20120305, end: 20120305
  3. NEOSURE ADVANCE [Concomitant]
     Dates: start: 20120305, end: 20120301
  4. HEPATITIS B [Concomitant]
     Dates: start: 20120229, end: 20120301

REACTIONS (1)
  - DEATH [None]
